FAERS Safety Report 6238785-4 (Version None)
Quarter: 2009Q2

REPORT INFORMATION
  Report Type: 
  Country: None (occurrence: None)
  Receive Date: 20090622
  Receipt Date: 20090616
  Transmission Date: 20091009
  Serious: Yes (Hospitalization)
  Sender: FDA-Public Use
  Company Number: KP-WATSON-2009-04531

PATIENT
  Age: 76 Year
  Sex: Female

DRUGS (1)
  1. METRONIDAZOLE [Suspect]
     Indication: LIVER ABSCESS
     Dosage: 2 G, DAILY

REACTIONS (2)
  - DYSARTHRIA [None]
  - ENCEPHALOPATHY [None]
